FAERS Safety Report 7525148-4 (Version None)
Quarter: 2011Q2

REPORT INFORMATION
  Report Type: 
  Country: None (occurrence: None)
  Receive Date: 20110606
  Receipt Date: 20110531
  Transmission Date: 20111010
  Serious: Yes (Death)
  Sender: FDA-Public Use
  Company Number: US-CELGENEUS-163-21880-11020360

PATIENT
  Sex: Male

DRUGS (6)
  1. SIMVASTATIN [Concomitant]
     Dosage: 40 MILLIGRAM
     Route: 065
  2. ARICEPT [Concomitant]
     Route: 065
  3. CYMBALTA [Concomitant]
     Indication: DEPRESSION
     Dosage: 60 MILLIGRAM
     Route: 065
  4. CARVEDILOL [Concomitant]
     Dosage: 3.125 MILLIGRAM
     Route: 065
  5. NEXIUM [Concomitant]
     Dosage: 40 MILLIGRAM
     Route: 065
  6. REVLIMID [Suspect]
     Indication: MULTIPLE MYELOMA
     Dosage: 5 MILLIGRAM
     Route: 048
     Dates: start: 20101014

REACTIONS (1)
  - RESPIRATORY ARREST [None]
